FAERS Safety Report 8463539 (Version 3)
Quarter: 2014Q2

REPORT INFORMATION
  Report Type: Spontaneous
  Country: US (occurrence: US)
  Receive Date: 20120316
  Receipt Date: 20140507
  Transmission Date: 20141212
  Serious: Yes (Hospitalization)
  Sender: FDA-Public Use
  Company Number: US-BAYER-2012-023866

PATIENT
  Age: 24 Year
  Sex: Female
  Weight: 68 kg

DRUGS (11)
  1. YAZ [Suspect]
     Indication: ACNE
     Dosage: UNK
     Dates: start: 2002, end: 2006
  2. PAROXETIN [Concomitant]
     Dosage: 10 MG, UNK
  3. ALPRAZOLAM [Concomitant]
     Dosage: 0.25 MG, UNK
  4. CIPRO [Concomitant]
     Dosage: 500 MG, BID
  5. ZELNORM [Concomitant]
  6. PEPCID [Concomitant]
  7. DARVOCET [Concomitant]
  8. MYLANTA [CALCIUM CARBONATE] [Concomitant]
  9. DONNATAL [Concomitant]
  10. LIDOCAINE [Concomitant]
  11. TORADOL [Concomitant]

REACTIONS (2)
  - Cholecystitis chronic [None]
  - Cholelithiasis [None]
